FAERS Safety Report 13348219 (Version 1)
Quarter: 2017Q1

REPORT INFORMATION
  Report Type: Spontaneous
  Country: US (occurrence: US)
  Receive Date: 20170318
  Receipt Date: 20170318
  Transmission Date: 20170428
  Serious: No
  Sender: FDA-Public Use
  Company Number: US-ELI_LILLY_AND_COMPANY-US201608005251

PATIENT
  Age: 53 Year
  Sex: Female
  Weight: 123 kg

DRUGS (1)
  1. CYMBALTA [Suspect]
     Active Substance: DULOXETINE HYDROCHLORIDE
     Indication: PRODUCT USED FOR UNKNOWN INDICATION
     Dosage: UNK, UNKNOWN
     Route: 065
     Dates: end: 201409

REACTIONS (9)
  - Balance disorder [Unknown]
  - Agitation [Unknown]
  - Anxiety [Unknown]
  - Drug withdrawal syndrome [Unknown]
  - Paraesthesia [Unknown]
  - Dizziness [Unknown]
  - Neuropathy peripheral [Unknown]
  - Dysphoria [Unknown]
  - Irritability [Unknown]

NARRATIVE: CASE EVENT DATE: 201406
